FAERS Safety Report 9334054 (Version 1)
Quarter: 2013Q2

REPORT INFORMATION
  Report Type: Spontaneous
  Country: DE (occurrence: None)
  Receive Date: 20130604
  Receipt Date: 20130604
  Transmission Date: 20140414
  Serious: Yes (Other)
  Sender: FDA-Public Use
  Company Number: AUR-APL-2013-04479

PATIENT
  Age: 26 Year
  Sex: Female
  Weight: 92 kg

DRUGS (2)
  1. SERTRALINE (SERTRALINE) (SERTRALINE) [Suspect]
     Indication: PANIC DISORDER
     Dosage: 1D
     Route: 048
     Dates: start: 20120514, end: 20130222
  2. FEMIBION [Concomitant]

REACTIONS (5)
  - Pregnancy [None]
  - Exposure during pregnancy [None]
  - Caesarean section [None]
  - Stillbirth [None]
  - Umbilical cord abnormality [None]
